FAERS Safety Report 4327773-0 (Version None)
Quarter: 2004Q1

REPORT INFORMATION
  Report Type: 
  Country: None (occurrence: None)
  Receive Date: 20040331
  Receipt Date: 20040325
  Transmission Date: 20041129
  Serious: Yes (Other)
  Sender: FDA-Public Use
  Company Number: 200410993EU

PATIENT
  Age: 64 Year
  Sex: Female
  Weight: 60 kg

DRUGS (2)
  1. FUROSEMIDE [Suspect]
     Indication: HYPERTENSION
  2. OXCARBAZEPINE [Suspect]
     Indication: EPILEPSY

REACTIONS (7)
  - BLOOD CHLORIDE DECREASED [None]
  - BLOOD SODIUM DECREASED [None]
  - CONFUSIONAL STATE [None]
  - DELIRIUM [None]
  - ELECTROENCEPHALOGRAM ABNORMAL [None]
  - HALLUCINATIONS, MIXED [None]
  - HYPERTENSION [None]
